FAERS Safety Report 6405884-3 (Version None)
Quarter: 2009Q4

REPORT INFORMATION
  Report Type: 
  Country: None (occurrence: None)
  Receive Date: 20091016
  Receipt Date: 20091016
  Transmission Date: 20100525
  Serious: Yes (Death)
  Sender: FDA-Public Use
  Company Number: None

PATIENT
  Age: 62 Year
  Sex: Female
  Weight: 80.2867 kg

DRUGS (4)
  1. PALONOSTREN [Suspect]
     Indication: PROPHYLAXIS OF NAUSEA AND VOMITING
     Dosage: 0.25MG ONCE IV DRIP
     Route: 041
     Dates: start: 20090922, end: 20090922
  2. GRANISETRON HCL [Suspect]
     Dosage: 1MG ONCE IV DRIP
     Route: 041
  3. APREPITANT [Suspect]
     Dosage: 1 TABLET ONCE PO
     Route: 048
  4. PLACEBO [Suspect]
     Dosage: PLACEBO ONCE PO
     Route: 048

REACTIONS (17)
  - ACUTE MYOCARDIAL INFARCTION [None]
  - ANAEMIA [None]
  - ATRIAL FLUTTER [None]
  - CHEST PAIN [None]
  - DEEP VEIN THROMBOSIS [None]
  - DEVICE RELATED INFECTION [None]
  - FLUID RETENTION [None]
  - HYPOTENSION [None]
  - INTRACARDIAC MASS [None]
  - LUNG NEOPLASM MALIGNANT [None]
  - MALNUTRITION [None]
  - METASTASES TO HEART [None]
  - METASTASES TO LYMPH NODES [None]
  - OEDEMA [None]
  - ORAL CANDIDIASIS [None]
  - RENAL FAILURE ACUTE [None]
  - SARCOMA METASTATIC [None]
